FAERS Safety Report 5662014-3 (Version None)
Quarter: 2008Q1

REPORT INFORMATION
  Report Type: 
  Country: None (occurrence: None)
  Receive Date: 20080303
  Receipt Date: 20080214
  Transmission Date: 20080703
  Serious: Yes (Death)
  Sender: FDA-Public Use
  Company Number: WAES 0802DEU00099

PATIENT

DRUGS (1)
  1. CANCIDAS [Suspect]
     Indication: BRONCHOPULMONARY ASPERGILLOSIS
     Dosage: 50-70 MG IV
     Route: 042

REACTIONS (2)
  - DRUG INEFFECTIVE [None]
  - SEPSIS [None]
